FAERS Safety Report 8887084 (Version 1)
Quarter: 2012Q4

REPORT INFORMATION
  Report Type: 
  Country: US (occurrence: US)
  Receive Date: 20121101
  Receipt Date: 20121101
  Transmission Date: 20130627
  Serious: Yes (Other)
  Sender: FDA-Public Use
  Company Number: PHHY2012US097103

PATIENT
  Age: 72 Year
  Sex: Male

DRUGS (1)
  1. HEPARIN [Suspect]

REACTIONS (5)
  - Thrombotic thrombocytopenic purpura [Recovered/Resolved]
  - Heparin-induced thrombocytopenia [Recovered/Resolved]
  - Ecchymosis [Recovered/Resolved]
  - Renal impairment [Recovered/Resolved]
  - Intracardiac thrombus [Recovered/Resolved]
